FAERS Safety Report 6429827-1 (Version None)
Quarter: 2009Q4

REPORT INFORMATION
  Report Type: 
  Country: None (occurrence: None)
  Receive Date: 20091103
  Receipt Date: 20091021
  Transmission Date: 20100525
  Serious: Yes (Other)
  Sender: FDA-Public Use
  Company Number: DSM-2009-01540

PATIENT
  Age: 82 Year
  Sex: Male
  Weight: 74 kg

DRUGS (7)
  1. OLMESARTAN MEDOXOMIL/AMLODIPINE/HYDROCHLOROTHIAZIDE [Suspect]
     Indication: HYPERTENSION
     Dosage: 40 / 10 MG (1 IN 1 D), ORAL
     Route: 048
     Dates: start: 20090602, end: 20090630
  2. MICARDIS [Concomitant]
  3. VASEXTEN (BARNIDIPINE HYDROCHLORIDE) [Concomitant]
  4. BISOPROLOL FUMARATE [Concomitant]
  5. PLAVIX [Concomitant]
  6. CRESTOR [Concomitant]
  7. FLUNITRAZEPAM (FLUNITRAZEPAM) [Concomitant]

REACTIONS (2)
  - BLOOD CREATININE INCREASED [None]
  - BLOOD UREA INCREASED [None]
